FAERS Safety Report 23791595 (Version 1)
Quarter: 2024Q2

REPORT INFORMATION
  Report Type: Spontaneous
  Country: GB (occurrence: GB)
  Receive Date: 20240429
  Receipt Date: 20240429
  Transmission Date: 20240716
  Serious: Yes (Other)
  Sender: FDA-Public Use
  Company Number: GB-MHRA-TPP8822179C9015567YC1712654423882

PATIENT
  Age: 65 Year
  Sex: Female
  Weight: 60 kg

DRUGS (3)
  1. AMLODIPINE [Suspect]
     Active Substance: AMLODIPINE BESYLATE
     Indication: Product used for unknown indication
     Dosage: 5 MILLIGRAM, ONCE A DAY, EACH MORNING
     Route: 048
     Dates: start: 20231222
  2. Cetraben [Concomitant]
     Indication: Product used for unknown indication
     Dosage: UNK UNK, AS NECESSARY
     Route: 065
     Dates: start: 20150219
  3. RAMIPRIL [Concomitant]
     Active Substance: RAMIPRIL
     Indication: Product used for unknown indication
     Dosage: 1 DOSAGE FORM, ONCE A DAY
     Route: 048
     Dates: start: 20240409

REACTIONS (1)
  - Joint swelling [Recovering/Resolving]
